FAERS Safety Report 9264432 (Version 3)
Quarter: 2013Q2

REPORT INFORMATION
  Report Type: Spontaneous
  Country: US (occurrence: US)
  Receive Date: 20130501
  Receipt Date: 20130517
  Transmission Date: 20140414
  Serious: Yes (Death, Hospitalization)
  Sender: FDA-Public Use
  Company Number: US-B.I. PHARMACEUTICALS,INC./RIDGEFIELD-2013-BI-11587BP

PATIENT
  Sex: 0

DRUGS (6)
  1. PRADAXA [Suspect]
     Indication: ATRIAL FIBRILLATION
  2. ASPIRIN [Suspect]
  3. PLAVIX [Suspect]
  4. STATIN MEDICATIONS [Concomitant]
  5. BETA BLOCKERS [Concomitant]
  6. SEVERAL CARDIAC MEDICATIONS [Concomitant]

REACTIONS (3)
  - Traumatic intracranial haemorrhage [Fatal]
  - Fall [Unknown]
  - Head injury [Unknown]
